FAERS Safety Report 6860480-9 (Version None)
Quarter: 2010Q3

REPORT INFORMATION
  Report Type: 
  Country: None (occurrence: None)
  Receive Date: 20100720
  Receipt Date: 20100628
  Transmission Date: 20110219
  Serious: Yes (Hospitalization)
  Sender: FDA-Public Use
  Company Number: A0832632A

PATIENT
  Age: 36 Year
  Sex: Male
  Weight: 109.1 kg

DRUGS (7)
  1. AVANDIA [Suspect]
     Indication: DIABETES MELLITUS
     Dosage: 8MG PER DAY
     Route: 048
     Dates: start: 19990101, end: 20080101
  2. LISINOPRIL [Concomitant]
  3. VYTORIN [Concomitant]
  4. PREVACID [Concomitant]
  5. GLUCOPHAGE [Concomitant]
  6. FIORICET [Concomitant]
  7. ACTOS [Concomitant]

REACTIONS (1)
  - MYOCARDIAL INFARCTION [None]
